FAERS Safety Report 16699604 (Version 1)
Quarter: 2019Q3

REPORT INFORMATION
  Report Type: Report from Study
  Country: US (occurrence: US)
  Receive Date: 20190813
  Receipt Date: 20190813
  Transmission Date: 20191004
  Serious: Yes (Death)
  Sender: FDA-Public Use
  Company Number: US-TAIHO ONCOLOGY  INC-EU-2019-02667

PATIENT
  Age: 66 Year
  Sex: Male
  Weight: 95.34 kg

DRUGS (7)
  1. AMLODIPINE BESYLATE. [Concomitant]
     Active Substance: AMLODIPINE BESYLATE
     Dosage: NI
  2. DIPHENOXYLATE/ATROPINE [Concomitant]
     Active Substance: ATROPINE\DIPHENOXYLATE
     Dosage: NI
  3. MULTIVITAMINS [Concomitant]
     Active Substance: VITAMINS
     Dosage: NI
  4. NOVOLIN R [Concomitant]
     Active Substance: INSULIN HUMAN
     Dosage: NI
  5. LONSURF [Suspect]
     Active Substance: TIPIRACIL HYDROCHLORIDE\TRIFLURIDINE
     Indication: COLON CANCER
     Dosage: CURRENT CYCLE UNKNOWN
     Route: 048
     Dates: start: 20190624
  6. NOVOLIN N [Concomitant]
     Active Substance: INSULIN HUMAN
     Dosage: NI
  7. NOVOLOG [Concomitant]
     Active Substance: INSULIN ASPART
     Dosage: NI

REACTIONS (1)
  - Death [Fatal]

NARRATIVE: CASE EVENT DATE: 20190801
